FAERS Safety Report 5999996-6 (Version None)
Quarter: 2008Q4

REPORT INFORMATION
  Report Type: 
  Country: None (occurrence: None)
  Receive Date: 20081211
  Receipt Date: 20081211
  Transmission Date: 20090506
  Serious: No
  Sender: FDA-Public Use
  Company Number: None

PATIENT
  Sex: Female
  Weight: 68.0396 kg

DRUGS (2)
  1. LAMOTRIGINE [Suspect]
     Indication: ANTIDEPRESSANT THERAPY
     Dosage: 1 TAB DAILY
     Dates: start: 20081020, end: 20081025
  2. LAMOTRIGINE [Suspect]

REACTIONS (2)
  - LEPROSY [None]
  - STEVENS-JOHNSON SYNDROME [None]
